FAERS Safety Report 24771622 (Version 2)
Quarter: 2025Q3

REPORT INFORMATION
  Report Type: Spontaneous
  Country: EU (occurrence: EU)
  Receive Date: 20241224
  Receipt Date: 20250809
  Transmission Date: 20251020
  Serious: Yes (Other)
  Sender: ALEXION PHARMACEUTICALS
  Company Number: None

PATIENT
  Age: 35 Year
  Sex: Male
  Weight: 120 kg

DRUGS (5)
  1. TEZSPIRE [Suspect]
     Active Substance: TEZEPELUMAB-EKKO
     Indication: Asthma
  2. TEZSPIRE [Suspect]
     Active Substance: TEZEPELUMAB-EKKO
  3. WEGOVY [Concomitant]
     Active Substance: SEMAGLUTIDE
     Indication: Overweight
  4. FLUTIFORM [Concomitant]
     Active Substance: FLUTIFORM
     Indication: Asthma
  5. TIOTROPIUM [Concomitant]
     Active Substance: TIOTROPIUM
     Indication: Lung disorder

REACTIONS (1)
  - Iridocyclitis [Unknown]

NARRATIVE: CASE EVENT DATE: 20240901
